FAERS Safety Report 24738611 (Version 1)
Quarter: 2024Q4

REPORT INFORMATION
  Report Type: Spontaneous
  Country: US (occurrence: None)
  Receive Date: 20241216
  Receipt Date: 20241216
  Transmission Date: 20250115
  Serious: Yes (Death)
  Sender: Public
  Company Number: None

PATIENT
  Age: 76 Year
  Sex: Male

DRUGS (1)
  1. JAYPIRCA [Suspect]
     Active Substance: PIRTOBRUTINIB
     Indication: B-cell small lymphocytic lymphoma
     Dosage: 300MG QD?
     Dates: start: 20241214, end: 20241214

REACTIONS (1)
  - Death [None]

NARRATIVE: CASE EVENT DATE: 20241214
